FAERS Safety Report 16808767 (Version 1)
Quarter: 2019Q3

REPORT INFORMATION
  Report Type: Report from Study
  Country: GB (occurrence: GB)
  Receive Date: 20190916
  Receipt Date: 20190916
  Transmission Date: 20191005
  Serious: Yes (Other)
  Sender: FDA-Public Use
  Company Number: GB-TEVA-2019-GB-1106773

PATIENT
  Age: 30 Year
  Sex: Female

DRUGS (6)
  1. GILENYA [Suspect]
     Active Substance: FINGOLIMOD HYDROCHLORIDE
     Dosage: 0.5 MG, QD
     Dates: start: 20160115, end: 20160526
  2. GILENYA [Suspect]
     Active Substance: FINGOLIMOD HYDROCHLORIDE
     Dosage: 0.5 MG, QD
     Route: 048
     Dates: start: 20160601
  3. DULOXETINE. [Suspect]
     Active Substance: DULOXETINE
     Indication: PRODUCT USED FOR UNKNOWN INDICATION
     Route: 065
  4. GILENYA [Suspect]
     Active Substance: FINGOLIMOD HYDROCHLORIDE
     Dosage: 0.5 MG, QD
     Route: 048
     Dates: start: 20160601
  5. GILENYA [Suspect]
     Active Substance: FINGOLIMOD HYDROCHLORIDE
     Dosage: 0.5 MG, QD
     Route: 048
     Dates: start: 20150613, end: 20151008
  6. GILENYA [Suspect]
     Active Substance: FINGOLIMOD HYDROCHLORIDE
     Dosage: 0.5 MG, QD
     Route: 048
     Dates: start: 20131022, end: 20150612

REACTIONS (16)
  - Lower respiratory tract infection [Recovered/Resolved]
  - White blood cell count decreased [Recovered/Resolved]
  - Lymphopenia [Unknown]
  - Urinary tract infection [Recovered/Resolved]
  - Nausea [Unknown]
  - Lower respiratory tract infection [Recovered/Resolved]
  - Upper respiratory tract infection [Unknown]
  - Oropharyngeal pain [Unknown]
  - Menometrorrhagia [Unknown]
  - Tooth abscess [Unknown]
  - Neutrophil count decreased [Unknown]
  - Lower respiratory tract infection [Recovered/Resolved]
  - Viral upper respiratory tract infection [Unknown]
  - Lower respiratory tract infection [Unknown]
  - Blood creatine decreased [Unknown]
  - Cough [Unknown]

NARRATIVE: CASE EVENT DATE: 201312
